FAERS Safety Report 24922333 (Version 1)
Quarter: 2025Q1

REPORT INFORMATION
  Report Type: Spontaneous
  Country: GB (occurrence: GB)
  Receive Date: 20250204
  Receipt Date: 20250204
  Transmission Date: 20250408
  Serious: Yes (Life-Threatening, Hospitalization, Other)
  Sender: OCTAPHARMA
  Company Number: None

PATIENT
  Age: 54 Year
  Sex: Female

DRUGS (3)
  1. OCTAGAM IMMUNE GLOBULIN (HUMAN) [Suspect]
     Active Substance: HUMAN IMMUNOGLOBULIN G
     Indication: Prophylaxis
     Dates: start: 20250123
  2. OCTAGAM IMMUNE GLOBULIN (HUMAN) [Suspect]
     Active Substance: HUMAN IMMUNOGLOBULIN G
     Dates: start: 20250123
  3. OCTAGAM IMMUNE GLOBULIN (HUMAN) [Suspect]
     Active Substance: HUMAN IMMUNOGLOBULIN G
     Dates: start: 20250123

REACTIONS (1)
  - Haemolysis [Recovering/Resolving]

NARRATIVE: CASE EVENT DATE: 20250124
